FAERS Safety Report 5221011-2 (Version None)
Quarter: 2007Q1

REPORT INFORMATION
  Report Type: 
  Country: None (occurrence: None)
  Receive Date: 20070126
  Receipt Date: 20070116
  Transmission Date: 20070707
  Serious: Yes (Hospitalization)
  Sender: FDA-Public Use
  Company Number: ES-MERCK-0701ESP00023

PATIENT
  Age: 19 Year
  Sex: Female
  Weight: 46 kg

DRUGS (7)
  1. SINGULAIR [Suspect]
     Indication: ASTHMA
     Route: 048
     Dates: start: 20061215, end: 20061225
  2. [THERAPY UNSPECIFIED] [Concomitant]
     Route: 065
  3. DIGOXIN [Concomitant]
     Route: 065
  4. ACENOCOUMAROL [Concomitant]
     Route: 065
  5. PENICILLIN (UNSPECIFIED) [Concomitant]
     Route: 065
  6. FORMOTEROL FUMARATE AND BUDESONIDE [Concomitant]
     Route: 065
  7. IPRATROPIUM BROMIDE [Concomitant]
     Route: 065

REACTIONS (3)
  - ATRIAL FIBRILLATION [None]
  - MALAISE [None]
  - SPEECH DISORDER [None]
